FAERS Safety Report 15763162 (Version 2)
Quarter: 2019Q1

REPORT INFORMATION
  Report Type: Spontaneous
  Country: FR (occurrence: FR)
  Receive Date: 20181226
  Receipt Date: 20190307
  Transmission Date: 20190417
  Serious: Yes (Hospitalization)
  Sender: FDA-Public Use
  Company Number: FR-BAXTER-2018BAX030694

PATIENT
  Sex: Female

DRUGS (28)
  1. GLUCOSE 10% BAXTER, SOLUTION POUR PERFUSION [Suspect]
     Active Substance: DEXTROSE
     Dosage: 700 ML PER BAG; WITH VITAMIN K1
     Route: 065
     Dates: start: 201810
  2. POTASSIUM CHLORIDE. [Suspect]
     Active Substance: POTASSIUM CHLORIDE
     Dosage: 500 ML, 45 ML PER BAG; WITH VITAMIN K1
     Route: 065
     Dates: start: 201810
  3. MAGNESIUM SULFATE. [Suspect]
     Active Substance: MAGNESIUM SULFATE
     Indication: PARENTERAL NUTRITION
     Dosage: 25 ML PER BAG; WITHOUT VITAMIN K1
     Route: 065
     Dates: start: 201810
  4. PHOCYTAN [Suspect]
     Active Substance: .ALPHA.-GLUCOSE-1-PHOSPHATE
     Indication: PARENTERAL NUTRITION
     Dosage: 91 ML PER BAG; WITHOUT VITAMIN K1
     Route: 065
     Dates: start: 201810
  5. VINTENE, SOLUTION INJECTABLE POUR PERFUSION [Suspect]
     Active Substance: AMINO ACIDS
     Dosage: 700 ML PER BAG; WITHOUT VITAMIN K1
     Route: 065
     Dates: start: 201810
  6. CERNEVIT [Suspect]
     Active Substance: VITAMINS
     Dosage: 5 ML PER BAG; WITH VITAMIN K1
     Route: 065
     Dates: start: 201810
  7. EPHYNAL [Suspect]
     Active Substance: .ALPHA.-TOCOPHEROL ACETATE
     Indication: PARENTERAL NUTRITION
     Dosage: 1 ML PER BAG; WITH VITAMIN K1
     Route: 065
     Dates: start: 201810
  8. PHOCYTAN [Suspect]
     Active Substance: .ALPHA.-GLUCOSE-1-PHOSPHATE
     Dosage: 91 ML PER BAG; WITH VITAMIN K1
     Route: 065
     Dates: start: 201810
  9. ZINC. [Suspect]
     Active Substance: ZINC
     Indication: PARENTERAL NUTRITION
     Dosage: 20 ML PER BAG; WITHOUT VITAMIN K1
     Route: 065
     Dates: start: 201810
  10. ZINC. [Suspect]
     Active Substance: ZINC
     Dosage: 20 ML PER BAG; WITH VITAMIN K1
     Route: 065
     Dates: start: 201810
  11. SELENIUM [Suspect]
     Active Substance: SELENIUM
     Dosage: 10 ML PER BAG; WITHOUT VITAMIN K1
     Route: 065
     Dates: start: 201810
  12. POTASSIUM CHLORIDE. [Suspect]
     Active Substance: POTASSIUM CHLORIDE
     Indication: PARENTERAL NUTRITION
     Dosage: 500 ML, 45 ML PER BAG; WITHOUT VITAMIN K1
     Route: 065
     Dates: start: 201810
  13. SMOFLIPID [Suspect]
     Active Substance: FISH OIL\MEDIUM-CHAIN TRIGLYCERIDES\OLIVE OIL\SOYBEAN OIL
     Dosage: 200 ML PER BAG; WITHOUT VITAMIN K1
     Route: 065
     Dates: start: 201810
  14. MAGNESIUM SULFATE. [Suspect]
     Active Substance: MAGNESIUM SULFATE
     Dosage: 25 ML PER BAG; WITH VITAMIN K1
     Route: 065
     Dates: start: 201810
  15. GLUCOSE CALCIUM 10% [Suspect]
     Active Substance: CALCIUM\DEXTROSE
     Indication: PARENTERAL NUTRITION
     Dosage: 500ML, 18 ML PER BAG; WITHOUT VITAMIN K1
     Route: 065
     Dates: start: 201810
  16. VINTENE, SOLUTION INJECTABLE POUR PERFUSION [Suspect]
     Active Substance: AMINO ACIDS
     Indication: PARENTERAL NUTRITION
     Dosage: 20 ML PER BAG; WITHOUT VITAMIN K1
     Route: 065
     Dates: start: 201810
  17. SELENIUM [Suspect]
     Active Substance: SELENIUM
     Dosage: 10 ML PER BAG; WITH VITAMIN K1
     Route: 065
     Dates: start: 201810
  18. SMOFLIPID [Suspect]
     Active Substance: FISH OIL\MEDIUM-CHAIN TRIGLYCERIDES\OLIVE OIL\SOYBEAN OIL
     Indication: PARENTERAL NUTRITION
     Dosage: 200 ML PER BAG; WITH VITAMIN K1
     Route: 065
     Dates: start: 201810
  19. KONAKION MM [Suspect]
     Active Substance: PHYTONADIONE
     Indication: PARENTERAL NUTRITION
     Dosage: 1 ML PER BAG
     Route: 065
     Dates: start: 201810
  20. GLUCOSE CALCIUM 10% [Suspect]
     Active Substance: CALCIUM\DEXTROSE
     Dosage: 500ML, 18 ML PER BAG; WITH VITAMIN K1
     Route: 065
     Dates: start: 201810
  21. SODIUM CHLORIDE. [Suspect]
     Active Substance: SODIUM CHLORIDE
     Indication: PARENTERAL NUTRITION
     Dosage: 41 ML PER BAG, WITHOUT VITAMIN K1
     Route: 065
     Dates: start: 201810
  22. VINTENE, SOLUTION INJECTABLE POUR PERFUSION [Suspect]
     Active Substance: AMINO ACIDS
     Dosage: 700 ML PER BAG; WITH VITAMIN K1
     Route: 065
     Dates: start: 201810
  23. VITAMIN K1 [Suspect]
     Active Substance: PHYTONADIONE
     Indication: PARENTERAL NUTRITION
     Dosage: 1 ML PER BAG; WITH VITAMIN K1
     Route: 065
     Dates: start: 201810
  24. SODIUM CHLORIDE. [Suspect]
     Active Substance: SODIUM CHLORIDE
     Dosage: 41 ML PER BAG, WITH VITAMIN K1
     Route: 065
     Dates: start: 201810
  25. GLUCOSE 10% BAXTER, SOLUTION POUR PERFUSION [Suspect]
     Active Substance: DEXTROSE
     Indication: PARENTERAL NUTRITION
     Dosage: 700 ML PER BAG; WITHOUT VITAMIN K1
     Route: 065
     Dates: start: 201810
  26. CERNEVIT [Suspect]
     Active Substance: VITAMINS
     Indication: PARENTERAL NUTRITION
     Dosage: 5 ML PER BAG; WITHOUT VITAMIN K1
     Route: 065
     Dates: start: 201810
  27. SELENIUM [Suspect]
     Active Substance: SELENIUM
     Indication: PARENTERAL NUTRITION
     Dosage: 10 ML PER BAG; WITHOUT VITAMIN K1
     Route: 065
     Dates: start: 201810
  28. EPHYNAL [Suspect]
     Active Substance: .ALPHA.-TOCOPHEROL ACETATE
     Dosage: 1 ML PER BAG; WITHOUT VITAMIN K1
     Route: 065
     Dates: start: 201810

REACTIONS (2)
  - Product use issue [Unknown]
  - Infection [Unknown]
